FAERS Safety Report 16431353 (Version 1)
Quarter: 2019Q2

REPORT INFORMATION
  Report Type: Spontaneous
  Country: US (occurrence: US)
  Receive Date: 20190507
  Receipt Date: 20190507
  Transmission Date: 20190711
  Serious: No
  Sender: FDA-Public Use
  Company Number: None

PATIENT
  Age: 49 Year
  Sex: Female

DRUGS (1)
  1. RASUVO [Suspect]
     Active Substance: METHOTREXATE SODIUM
     Dosage: DATES OF USE 11/01/2018 - 02/04/2018
     Dates: end: 20180204

REACTIONS (1)
  - Alopecia [None]

NARRATIVE: CASE EVENT DATE: 20190204
